FAERS Safety Report 7368815-8 (Version None)
Quarter: 2011Q1

REPORT INFORMATION
  Report Type: 
  Country: None (occurrence: None)
  Receive Date: 20110323
  Receipt Date: 20100909
  Transmission Date: 20110831
  Serious: Yes (Hospitalization, Other)
  Sender: FDA-Public Use
  Company Number: US-BAYER-200942434NA

PATIENT
  Sex: Female
  Weight: 91 kg

DRUGS (3)
  1. YASMIN [Suspect]
     Indication: CONTRACEPTION
     Dosage: 1 DF (DAILY DOSE), QD, ORAL
     Route: 048
     Dates: start: 20070701, end: 20071201
  2. YAZ [Suspect]
     Indication: PREMENSTRUAL SYNDROME
     Dosage: UNK
     Dates: start: 20070921, end: 20080114
  3. YAZ [Suspect]
     Indication: MENORRHAGIA

REACTIONS (4)
  - SWELLING [None]
  - DEEP VEIN THROMBOSIS [None]
  - HYPOAESTHESIA [None]
  - PAIN [None]
